FAERS Safety Report 10271277 (Version 1)
Quarter: 2014Q3

REPORT INFORMATION
  Report Type: Report from Study
  Country: US (occurrence: US)
  Receive Date: 20140701
  Receipt Date: 20140701
  Transmission Date: 20150326
  Serious: Yes (Other)
  Sender: FDA-Public Use
  Company Number: US-ABBVIE-14P-163-1252403-00

PATIENT
  Age: 46 Year
  Sex: Female

DRUGS (6)
  1. HUMIRA [Suspect]
     Active Substance: ADALIMUMAB
     Indication: CROHN^S DISEASE
     Dates: start: 200706
  2. MULTIVITAMIN [Concomitant]
     Active Substance: VITAMINS
     Indication: PRODUCT USED FOR UNKNOWN INDICATION
  3. FOLIC ACID. [Concomitant]
     Active Substance: FOLIC ACID
     Indication: IMMUNE SYSTEM DISORDER
  4. PROBIOTICS [Concomitant]
     Active Substance: PROBIOTICS NOS
     Indication: PRODUCT USED FOR UNKNOWN INDICATION
     Dosage: 1 BILLION PER CAPSULE
  5. HUMIRA [Suspect]
     Active Substance: ADALIMUMAB
  6. FISH OIL OMEGA 3 [Concomitant]
     Indication: IMMUNE SYSTEM DISORDER
     Dosage: 1400 MG/900 MG

REACTIONS (6)
  - Intestinal obstruction [Recovered/Resolved]
  - Folliculitis [Recovered/Resolved]
  - Faecal vomiting [Recovered/Resolved]
  - Abdominal pain [Recovered/Resolved]
  - Hernia repair [Recovered/Resolved]
  - Pernicious anaemia [Unknown]

NARRATIVE: CASE EVENT DATE: 201008
